FAERS Safety Report 4987972-1 (Version None)
Quarter: 2006Q2

REPORT INFORMATION
  Report Type: 
  Country: None (occurrence: None)
  Receive Date: 20060424
  Receipt Date: 20060324
  Transmission Date: 20061013
  Serious: Yes (Life-Threatening)
  Sender: FDA-Public Use
  Company Number: CN 2006 0003

PATIENT
  Sex: Female

DRUGS (1)
  1. DOTAREM (MEGLUMINE GADOTERATE) [Suspect]
     Dosage: 15ML PER DAY
     Route: 042

REACTIONS (9)
  - BLOOD PRESSURE IMMEASURABLE [None]
  - CHEST DISCOMFORT [None]
  - COLD SWEAT [None]
  - INCONTINENCE [None]
  - LOSS OF CONSCIOUSNESS [None]
  - MALAISE [None]
  - NAUSEA [None]
  - PULSE ABSENT [None]
  - VOMITING [None]
